FAERS Safety Report 25881343 (Version 1)
Quarter: 2025Q4

REPORT INFORMATION
  Report Type: Spontaneous
  Country: US (occurrence: None)
  Receive Date: 20251005
  Receipt Date: 20251005
  Transmission Date: 20260118
  Serious: Yes (Death, Life-Threatening, Hospitalization)
  Sender: DEXCEL LTD.
  Company Number: None

PATIENT
  Age: 30 Year
  Sex: Female

DRUGS (3)
  1. ETOPOSIDE [Suspect]
     Active Substance: ETOPOSIDE
     Indication: Haemophagocytic lymphohistiocytosis
     Dosage: REDUCED-DOSE ETOPOSIDE; GIVEN INSUFFICIENT RESPONSE AFTER THE SECOND ETOPOSIDE DOSE (16 DECEMBER ...
     Dates: start: 20241213, end: 202412
  2. DEXAMETHASONE [Suspect]
     Active Substance: DEXAMETHASONE
     Indication: Haemophagocytic lymphohistiocytosis
     Route: 040
     Dates: start: 20241213, end: 20241228
  3. VINCRISTINE [Concomitant]
     Active Substance: VINCRISTINE
     Indication: Haemophagocytic lymphohistiocytosis
     Dates: start: 20241219

REACTIONS (13)
  - Neutropenia [Fatal]
  - Myelosuppression [Fatal]
  - Pancytopenia [Fatal]
  - Cytomegalovirus viraemia [Fatal]
  - Acute respiratory distress syndrome [Fatal]
  - Pneumonia cytomegaloviral [Fatal]
  - Pneumonia parainfluenzae viral [Fatal]
  - Viral sepsis [Fatal]
  - Deep vein thrombosis [Unknown]
  - Respiratory failure [Fatal]
  - Acute myocardial infarction [Fatal]
  - Multiple organ dysfunction syndrome [Fatal]
  - Shock haemorrhagic [Fatal]

NARRATIVE: CASE EVENT DATE: 20241201
